FAERS Safety Report 5507300-2 (Version None)
Quarter: 2007Q4

REPORT INFORMATION
  Report Type: 
  Country: None (occurrence: None)
  Receive Date: 20071102
  Receipt Date: 20071022
  Transmission Date: 20080405
  Serious: Yes (Hospitalization)
  Sender: FDA-Public Use
  Company Number: CIP07001725

PATIENT
  Sex: Female

DRUGS (5)
  1. ACTONEL [Suspect]
     Indication: OSTEOPOROSIS POSTMENOPAUSAL
     Dosage: 35 MG ONCE WEEKLY, ORAL
     Route: 048
     Dates: start: 20070701, end: 20070801
  2. CORONAL /00802602/ (BISOPROLOL, FUMARATE) [Concomitant]
  3. CALCIUM (CALCIUM) [Concomitant]
  4. VITAMIN D /00107901/ (ERGOCALCIFEROL) [Concomitant]
  5. APAURIN (DIAZEPAM) [Concomitant]

REACTIONS (14)
  - ANGIOSCLEROSIS [None]
  - ARACHNOID CYST [None]
  - BLEPHAROSPASM [None]
  - CEREBRAL ATROPHY [None]
  - ELECTROENCEPHALOGRAM ABNORMAL [None]
  - EXTRAOCULAR MUSCLE DISORDER [None]
  - EYE DISORDER [None]
  - EYE INJURY [None]
  - EYE LUXATION [None]
  - EYE OEDEMA [None]
  - EYELID PTOSIS [None]
  - LACRIMATION INCREASED [None]
  - PRESBYOPIA [None]
  - VISUAL DISTURBANCE [None]
